FAERS Safety Report 23859161 (Version 8)
Quarter: 2025Q3

REPORT INFORMATION
  Report Type: Report from Study
  Country: CN (occurrence: CN)
  Receive Date: 20240515
  Receipt Date: 20250728
  Transmission Date: 20251020
  Serious: Yes (Hospitalization)
  Sender: EISAI
  Company Number: CN-Eisai-EC-2024-165434

PATIENT
  Age: 56 Year
  Sex: Female
  Weight: 50.5 kg

DRUGS (2)
  1. ERIBULIN [Suspect]
     Active Substance: ERIBULIN
     Indication: Breast cancer
     Dates: start: 20240122, end: 20240412
  2. ERIBULIN [Suspect]
     Active Substance: ERIBULIN
     Dates: start: 20240816, end: 20240816

REACTIONS (2)
  - Cholecystitis [Recovered/Resolved with Sequelae]
  - Cholecystitis chronic [Recovered/Resolved with Sequelae]

NARRATIVE: CASE EVENT DATE: 20240424
